FAERS Safety Report 6644078-3 (Version None)
Quarter: 2010Q1

REPORT INFORMATION
  Report Type: 
  Country: None (occurrence: None)
  Receive Date: 20100304
  Receipt Date: 20100217
  Transmission Date: 20100710
  Serious: Yes (Other)
  Sender: FDA-Public Use
  Company Number: 2009021269

PATIENT
  Age: 58 Year
  Sex: Female

DRUGS (1)
  1. HUMATE-P (ANTIHEMOPHILIC FACTOR (HUMAN) VWF, DRIED, PASTEURIZED) LOT# [Suspect]
     Dosage: 2000 IU, 2000 IU, INTRAVENOUS (NOT OTHERWISE  SPECIFIED)
     Route: 042
     Dates: start: 20091009

REACTIONS (5)
  - ATELECTASIS [None]
  - CYANOSIS [None]
  - LUNG INFILTRATION [None]
  - OXYGEN SATURATION DECREASED [None]
  - SOMNOLENCE [None]
